FAERS Safety Report 26201425 (Version 1)
Quarter: 2025Q4

REPORT INFORMATION
  Report Type: Spontaneous
  Country: JP (occurrence: JP)
  Receive Date: 20251226
  Receipt Date: 20251226
  Transmission Date: 20260117
  Serious: Yes (Death, Hospitalization, Other)
  Sender: ASTELLAS
  Company Number: JP-ASTELLAS-2025-AER-071445

PATIENT
  Age: 76 Year
  Sex: Male
  Weight: 42 kg

DRUGS (12)
  1. PROGRAF [Suspect]
     Active Substance: TACROLIMUS
     Indication: Polymyositis
     Route: 048
     Dates: start: 20251022, end: 20251104
  2. PROGRAF [Suspect]
     Active Substance: TACROLIMUS
     Route: 048
     Dates: start: 20251105, end: 20251125
  3. Daiphen Tablets [Concomitant]
     Indication: Product used for unknown indication
     Dosage: 1 TABLET/2 DAYS
     Route: 065
  4. ALENDRONATE SODIUM [Concomitant]
     Active Substance: ALENDRONATE SODIUM
     Indication: Product used for unknown indication
     Dosage: 1 TABLET/MONDAY
     Route: 065
  5. Alfacalcidol Tablets 0.5 ug [Concomitant]
     Indication: Product used for unknown indication
     Dosage: 1 TABLET
     Route: 065
  6. Esomeprazole Capsules 20mg [Concomitant]
     Indication: Product used for unknown indication
     Dosage: 1 CAPSULE (CAP)
     Route: 065
  7. CARBOHYDRATES\FATTY ACIDS\MINERALS\PROTEIN\VITAMINS [Concomitant]
     Active Substance: CARBOHYDRATES\FATTY ACIDS\MINERALS\PROTEIN\VITAMINS
     Indication: Product used for unknown indication
     Dosage: 1 BOTTLE
     Route: 065
  8. PREDONINE [Concomitant]
     Active Substance: PREDNISOLONE
     Indication: Polymyositis
     Route: 048
     Dates: start: 20250614
  9. PREDONINE [Concomitant]
     Active Substance: PREDNISOLONE
     Dosage: GRADUALLY DECREASED
     Route: 048
     Dates: start: 20250816
  10. PREDONINE [Concomitant]
     Active Substance: PREDNISOLONE
     Route: 048
     Dates: start: 20251017
  11. PREDONINE [Concomitant]
     Active Substance: PREDNISOLONE
     Dosage: 4 TABLETS
     Route: 048
     Dates: start: 20251126
  12. AZATHIOPRINE [Concomitant]
     Active Substance: AZATHIOPRINE
     Indication: Polymyositis
     Route: 065
     Dates: start: 20251126, end: 20251210

REACTIONS (3)
  - Sinus bradycardia [Recovering/Resolving]
  - Atrioventricular block [Recovering/Resolving]
  - Thrombotic microangiopathy [Fatal]

NARRATIVE: CASE EVENT DATE: 20251123
